FAERS Safety Report 23096595 (Version 1)
Quarter: 2023Q4

REPORT INFORMATION
  Report Type: Spontaneous
  Country: US (occurrence: None)
  Receive Date: 20231022
  Receipt Date: 20231022
  Transmission Date: 20240110
  Serious: Yes (Hospitalization, Other)
  Sender: FDA-Public Use
  Company Number: None

PATIENT
  Age: 68 Year
  Sex: Female
  Weight: 55.8 kg

DRUGS (5)
  1. FLAGYL [Suspect]
     Active Substance: METRONIDAZOLE\METRONIDAZOLE HYDROCHLORIDE
     Indication: Antibiotic therapy
     Dosage: FREQUENCY : EVERY 8 HOURS;?
     Route: 042
     Dates: start: 20231016, end: 20231018
  2. Elliquis [Concomitant]
  3. MIDODRINE [Concomitant]
     Active Substance: MIDODRINE
  4. CEFTRIAXONE [Concomitant]
     Active Substance: CEFTRIAXONE\CEFTRIAXONE SODIUM
  5. METOPROLOL [Concomitant]
     Active Substance: METOPROLOL

REACTIONS (2)
  - Pseudostroke [None]
  - Hemiparesis [None]

NARRATIVE: CASE EVENT DATE: 20231017
